FAERS Safety Report 7032325-8 (Version None)
Quarter: 2010Q4

REPORT INFORMATION
  Report Type: 
  Country: None (occurrence: None)
  Receive Date: 20101005
  Receipt Date: 20100920
  Transmission Date: 20110411
  Serious: Yes (Other)
  Sender: FDA-Public Use
  Company Number: 064144

PATIENT
  Age: 26 Year
  Sex: Male

DRUGS (1)
  1. MITOMYCIN [Suspect]
     Indication: TRABECULECTOMY

REACTIONS (7)
  - MACULAR OEDEMA [None]
  - MACULOPATHY [None]
  - OFF LABEL USE [None]
  - OPTIC NERVE SHEATH HAEMORRHAGE [None]
  - POST PROCEDURAL COMPLICATION [None]
  - RETINAL HAEMORRHAGE [None]
  - RETINOPATHY [None]
